FAERS Safety Report 18373206 (Version 1)
Quarter: 2020Q4

REPORT INFORMATION
  Report Type: Spontaneous
  Country: CA (occurrence: CA)
  Receive Date: 20201012
  Receipt Date: 20201012
  Transmission Date: 20210114
  Serious: Yes (Hospitalization)
  Sender: FDA-Public Use
  Company Number: CA-PFIZER INC-2020391105

PATIENT
  Age: 74 Year
  Sex: Female

DRUGS (7)
  1. PREDNISONE. [Suspect]
     Active Substance: PREDNISONE
     Dosage: UNK
  2. RITUXAN [Concomitant]
     Active Substance: RITUXIMAB
     Dosage: 1 G OVER 8 MONTHS AGO
  3. CYCLOSPORINE. [Suspect]
     Active Substance: CYCLOSPORINE
     Dosage: UNK
  4. RITUXIMAB. [Concomitant]
     Active Substance: RITUXIMAB
     Dosage: 1 G AT DAY 0 AND DAY 15 REPEATED EVERY 6 MONTHS WHEN NECESSARY
  5. METHOTREXATE SODIUM. [Suspect]
     Active Substance: METHOTREXATE SODIUM
     Dosage: 15 MG
     Route: 065
  6. AZATHIOPRINE. [Suspect]
     Active Substance: AZATHIOPRINE
     Dosage: UNK
  7. RUXIENCE [Concomitant]
     Active Substance: RITUXIMAB-PVVR
     Indication: RHEUMATOID ARTHRITIS
     Dosage: 10 MG/ML, 50 ML VIAL

REACTIONS (2)
  - Dermatomyositis [Unknown]
  - Drug ineffective [Unknown]
